FAERS Safety Report 16994286 (Version 2)
Quarter: 2019Q4

REPORT INFORMATION
  Report Type: Report from Study
  Country: US (occurrence: US)
  Receive Date: 20191105
  Receipt Date: 20191110
  Transmission Date: 20200122
  Serious: Yes (Other)
  Sender: FDA-Public Use
  Company Number: NVSC2019US021102

PATIENT
  Sex: Female
  Weight: 98.87 kg

DRUGS (1)
  1. TREPROSTINIL. [Suspect]
     Active Substance: TREPROSTINIL
     Indication: PULMONARY ARTERIAL HYPERTENSION
     Dosage: 46 NG/KG/MIN
     Route: 042
     Dates: start: 20190910

REACTIONS (4)
  - Oxygen saturation decreased [Unknown]
  - Asthenia [Unknown]
  - Dependence on oxygen therapy [Unknown]
  - Dyspnoea [Unknown]
